FAERS Safety Report 9894565 (Version 2)
Quarter: 2014Q1

REPORT INFORMATION
  Report Type: Spontaneous
  Country: GB (occurrence: GB)
  Receive Date: 20140213
  Receipt Date: 20140213
  Transmission Date: 20141002
  Serious: Yes (Other)
  Sender: FDA-Public Use
  Company Number: GB-PFIZER INC-GBWYE534826JAN04

PATIENT
  Age: 33 Year
  Sex: Female
  Weight: 60.3 kg

DRUGS (2)
  1. OVRANETTE [Suspect]
     Indication: CONTRACEPTION
     Dosage: (0.15MG LEVONORGESTREL/0.03MG ETHINYL ESTRADIOL)1 DF, 1X/DAY
     Route: 048
     Dates: start: 19990127
  2. EFEXOR XL [Interacting]
     Dosage: ONCE DAILY
     Dates: start: 20020328

REACTIONS (3)
  - Drug interaction [Unknown]
  - Unintended pregnancy [Unknown]
  - Drug ineffective [Unknown]
